FAERS Safety Report 7945077-1 (Version None)
Quarter: 2011Q4

REPORT INFORMATION
  Report Type: 
  Country: None (occurrence: None)
  Receive Date: 20111129
  Receipt Date: 20111121
  Transmission Date: 20120403
  Serious: Yes (Hospitalization)
  Sender: FDA-Public Use
  Company Number: US-US-EMD SERONO, INC.-7008693

PATIENT
  Sex: Female
  Weight: 57 kg

DRUGS (8)
  1. LIPITOR [Concomitant]
  2. REBIF [Suspect]
     Indication: PRODUCT USED FOR UNKNOWN INDICATION
     Dates: start: 20100401, end: 20100501
  3. EFFEXOR [Concomitant]
  4. VITAMIN D [Concomitant]
  5. NOVANTRONE [Suspect]
     Indication: PRODUCT USED FOR UNKNOWN INDICATION
     Dates: start: 20080123, end: 20100220
  6. LAMICTAL [Concomitant]
  7. ALTACE [Concomitant]
  8. XANAX [Concomitant]

REACTIONS (3)
  - CARDIAC FAILURE CONGESTIVE [None]
  - CARDIOMYOPATHY [None]
  - EJECTION FRACTION DECREASED [None]
